FAERS Safety Report 4851045-9 (Version None)
Quarter: 2005Q4

REPORT INFORMATION
  Report Type: 
  Country: None (occurrence: None)
  Receive Date: 20051212
  Receipt Date: 20050929
  Transmission Date: 20060501
  Serious: Yes (Hospitalization)
  Sender: FDA-Public Use
  Company Number: DE-GILEAD-2005-0008749

PATIENT
  Sex: Male
  Weight: 94 kg

DRUGS (3)
  1. TRUVADA [Suspect]
     Indication: HIV INFECTION
     Route: 048
     Dates: start: 20050201, end: 20050705
  2. NORVIR [Concomitant]
     Indication: HIV INFECTION
     Route: 048
     Dates: start: 20040508, end: 20050705
  3. TELZIR [Concomitant]
     Indication: HIV INFECTION
     Route: 048
     Dates: start: 20041020, end: 20050705

REACTIONS (4)
  - ALLOGENIC BONE MARROW TRANSPLANTATION THERAPY [None]
  - APLASTIC ANAEMIA [None]
  - FEBRILE NEUTROPENIA [None]
  - PANCYTOPENIA [None]
